FAERS Safety Report 14473071 (Version 1)
Quarter: 2018Q1

REPORT INFORMATION
  Report Type: Spontaneous
  Country: DE (occurrence: DE)
  Receive Date: 20180201
  Receipt Date: 20180201
  Transmission Date: 20180509
  Serious: Yes (Other)
  Sender: FDA-Public Use
  Company Number: DE-CONCORDIA PHARMACEUTICALS INC.-E2B_00009639

PATIENT
  Age: 58 Year
  Sex: Female

DRUGS (9)
  1. TRANYLCYPROMINE [Suspect]
     Active Substance: TRANYLCYPROMINE
     Route: 048
     Dates: start: 20170519, end: 20170523
  2. QUILONORM RETARD [Suspect]
     Active Substance: LITHIUM CARBONATE
     Dosage: SEIT JAHREN
     Route: 048
  3. ZYPREXA [Concomitant]
     Active Substance: OLANZAPINE
     Route: 048
     Dates: start: 20170201, end: 20170227
  4. TRANYLCYPROMINE [Suspect]
     Active Substance: TRANYLCYPROMINE
     Route: 048
     Dates: start: 20170527, end: 20170529
  5. TRANYLCYPROMINE [Suspect]
     Active Substance: TRANYLCYPROMINE
     Route: 048
     Dates: start: 20170530, end: 20170614
  6. TRANYLCYPROMINE [Suspect]
     Active Substance: TRANYLCYPROMINE
     Dosage: B.A.W.
     Route: 048
     Dates: start: 20170615
  7. TRANYLCYPROMINE [Suspect]
     Active Substance: TRANYLCYPROMINE
     Route: 048
     Dates: start: 20170517, end: 20170518
  8. QUILONORM RETARD [Suspect]
     Active Substance: LITHIUM CARBONATE
     Dosage: B.A.W.
     Dates: start: 20170615
  9. ZYPREXA [Concomitant]
     Active Substance: OLANZAPINE
     Dosage: B.A.W.
     Route: 048
     Dates: start: 20170228

REACTIONS (1)
  - Renal impairment [Recovering/Resolving]

NARRATIVE: CASE EVENT DATE: 20170609
